FAERS Safety Report 9456396 (Version 6)
Quarter: 2016Q2

REPORT INFORMATION
  Report Type: Spontaneous
  Country: BR (occurrence: BR)
  Receive Date: 20130813
  Receipt Date: 20160628
  Transmission Date: 20160815
  Serious: Yes (Other)
  Sender: FDA-Public Use
  Company Number: BR-PFIZER INC-2013177706

PATIENT
  Age: 33 Year
  Sex: Female
  Weight: 68 kg

DRUGS (15)
  1. OMEPRAZOL [Concomitant]
     Active Substance: OMEPRAZOLE
     Indication: GASTRIC DISORDER
     Dosage: 20 MG, UNK
  2. ALPRAZOLAM. [Suspect]
     Active Substance: ALPRAZOLAM
     Indication: DEPRESSION
  3. ALPRAZOLAM. [Suspect]
     Active Substance: ALPRAZOLAM
     Indication: NERVOUSNESS
     Dosage: 2 MG, 1X/DAY (AT NIGHT)
     Route: 048
  4. PREDNISONE. [Concomitant]
     Active Substance: PREDNISONE
     Dosage: 10 MG 1X/DAY
     Dates: start: 2005
  5. PREDSIM [Concomitant]
     Active Substance: PREDNISOLONE
     Dosage: UNK
  6. HIDROXINE [Concomitant]
     Active Substance: HYDROXYZINE HYDROCHLORIDE
     Dosage: 26 MG, UNK
  7. ENBREL [Suspect]
     Active Substance: ETANERCEPT
     Indication: RHEUMATOID ARTHRITIS
     Dosage: 50 MG, ONCE WEEKLY
     Route: 058
     Dates: start: 201304, end: 201306
  8. AMATO [Concomitant]
     Active Substance: TOPIRAMATE
     Indication: DEPRESSION
  9. PANTOPRAZOL [Concomitant]
     Active Substance: PANTOPRAZOLE SODIUM
     Dosage: 40 MG, 2X/DAY
  10. DICLOFENAC SODIUM. [Concomitant]
     Active Substance: DICLOFENAC SODIUM
     Dosage: UNK
  11. DICLOFENAC [Concomitant]
     Active Substance: DICLOFENAC
     Dosage: 4 TABLETS (UNSPECIFIED DOSE)
     Dates: start: 2005
  12. AMATO [Concomitant]
     Active Substance: TOPIRAMATE
     Indication: NERVOUSNESS
     Dosage: 25 MG, 1X/DAY (AT NIGHT)
     Route: 048
  13. RIVOTRIL [Concomitant]
     Active Substance: CLONAZEPAM
     Indication: NERVOUSNESS
     Dosage: 25 MG, UNK
  14. METHOTREXATE [Concomitant]
     Active Substance: METHOTREXATE
     Indication: RHEUMATOID ARTHRITIS
     Dosage: 2 TABLETS (2.5MG EACH), TWICE A WEEK, TOTAL OF 4 TABLETS A WEEK
     Route: 048
  15. DEFLAZACORT [Concomitant]
     Active Substance: DEFLAZACORT
     Dosage: 6 MG, ONCE AT NIGHT
     Route: 048

REACTIONS (23)
  - Dry mouth [Unknown]
  - Injection site erythema [Unknown]
  - Injection site pruritus [Unknown]
  - Joint lock [Unknown]
  - Loss of consciousness [Recovering/Resolving]
  - Drug withdrawal syndrome [Recovering/Resolving]
  - Pruritus [Unknown]
  - Injection site reaction [Unknown]
  - Feeling abnormal [Unknown]
  - Hypersensitivity [Unknown]
  - Sleep disorder due to general medical condition, insomnia type [Unknown]
  - Depression [Unknown]
  - Tremor [Recovering/Resolving]
  - Syncope [Recovering/Resolving]
  - Injection site warmth [Unknown]
  - Injection site mass [Unknown]
  - Suicidal ideation [Recovering/Resolving]
  - Injection site pain [Unknown]
  - Paraesthesia [Unknown]
  - Injection site swelling [Unknown]
  - Pain [Unknown]
  - Erythema [Unknown]
  - Eye movement disorder [Recovering/Resolving]

NARRATIVE: CASE EVENT DATE: 2013
